FAERS Safety Report 4466910-4 (Version None)
Quarter: 2004Q3

REPORT INFORMATION
  Report Type: 
  Country: None (occurrence: None)
  Receive Date: 20040929
  Receipt Date: 20040929
  Transmission Date: 20050211
  Serious: Yes (Hospitalization)
  Sender: FDA-Public Use
  Company Number: None

PATIENT
  Sex: Female

DRUGS (4)
  1. BENICAR [Suspect]
     Indication: HYPERTENSION
     Dosage: ONE QD
  2. TIAZAC [Concomitant]
  3. LANTUS [Concomitant]
  4. NOVALOG [Concomitant]

REACTIONS (1)
  - SWOLLEN TONGUE [None]
